FAERS Safety Report 12457838 (Version 1)
Quarter: 2016Q2

REPORT INFORMATION
  Report Type: Spontaneous
  Country: US (occurrence: US)
  Receive Date: 20160611
  Receipt Date: 20160611
  Transmission Date: 20160815
  Serious: No
  Sender: FDA-Public Use
  Company Number: US-TEVA-661546USA

PATIENT
  Sex: Female
  Weight: 64.47 kg

DRUGS (2)
  1. HYDROCODONE [Concomitant]
     Active Substance: HYDROCODONE
  2. NUVIGIL [Suspect]
     Active Substance: ARMODAFINIL
     Indication: SOMNOLENCE
     Route: 065

REACTIONS (7)
  - Fear [Unknown]
  - Fatigue [Unknown]
  - Off label use [Unknown]
  - Therapeutic response unexpected [Unknown]
  - Anxiety [Unknown]
  - Intentional product misuse [Unknown]
  - Adverse event [Unknown]
